FAERS Safety Report 16116409 (Version 1)
Quarter: 2019Q1

REPORT INFORMATION
  Report Type: Spontaneous
  Country: FR (occurrence: FR)
  Receive Date: 20190326
  Receipt Date: 20190326
  Transmission Date: 20190418
  Serious: Yes (Hospitalization, Other)
  Sender: FDA-Public Use
  Company Number: FR-ADIENNEP-2019AD000137

PATIENT
  Age: 50 Year
  Sex: Female

DRUGS (1)
  1. THIOTEPA. [Suspect]
     Active Substance: THIOTEPA
     Indication: MENINGITIS
     Route: 037
     Dates: start: 20180821, end: 20190128

REACTIONS (3)
  - Headache [Unknown]
  - Vomiting [Unknown]
  - Meningitis aseptic [Recovering/Resolving]

NARRATIVE: CASE EVENT DATE: 201901
